FAERS Safety Report 6985992-9 (Version None)
Quarter: 2010Q3

REPORT INFORMATION
  Report Type: 
  Country: None (occurrence: None)
  Receive Date: 20100915
  Receipt Date: 20100907
  Transmission Date: 20110219
  Serious: Yes (Other)
  Sender: FDA-Public Use
  Company Number: CA-AMGEN-KDL425165

PATIENT
  Sex: Female
  Weight: 86.3 kg

DRUGS (9)
  1. ENBREL [Suspect]
     Indication: RHEUMATOID ARTHRITIS
     Route: 058
     Dates: start: 20040611, end: 20100716
  2. ASPIRIN [Concomitant]
  3. ALENDRONATE SODIUM [Concomitant]
  4. VITAMIN D [Concomitant]
  5. FOLIC ACID [Concomitant]
  6. PARIET [Concomitant]
  7. EZETROL [Concomitant]
  8. UNSPECIFIED INHALER [Concomitant]
  9. ARAVA [Concomitant]
     Dates: end: 20060101

REACTIONS (4)
  - ATRIAL FIBRILLATION [None]
  - HODGKIN'S DISEASE [None]
  - PERICARDITIS [None]
  - SECRETION DISCHARGE [None]
